FAERS Safety Report 6183962-4 (Version None)
Quarter: 2009Q2

REPORT INFORMATION
  Report Type: 
  Country: None (occurrence: None)
  Receive Date: 20090508
  Receipt Date: 20090504
  Transmission Date: 20091009
  Serious: No
  Sender: FDA-Public Use
  Company Number: US-B.I. PHARMACEUTICALS,INC./RIDGEFIELD-2009-BP-05612BP

PATIENT
  Sex: Female

DRUGS (10)
  1. SPIRIVA [Suspect]
     Indication: CHRONIC OBSTRUCTIVE PULMONARY DISEASE
     Route: 055
     Dates: start: 20070101, end: 20090503
  2. SPIRIVA [Suspect]
     Indication: EMPHYSEMA
  3. FLONASE [Concomitant]
     Route: 045
  4. SYMBICORT [Concomitant]
  5. LASIX [Concomitant]
  6. ALDACTONE [Concomitant]
  7. CLARINEX [Concomitant]
  8. CENTRUM A-Z [Concomitant]
  9. CALCIUM SUPPLEMENT [Concomitant]
  10. COMBIVENT [Concomitant]

REACTIONS (1)
  - VISION BLURRED [None]
